FAERS Safety Report 13778577 (Version 1)
Quarter: 2017Q3

REPORT INFORMATION
  Report Type: Spontaneous
  Country: US (occurrence: US)
  Receive Date: 20170721
  Receipt Date: 20170721
  Transmission Date: 20171127
  Serious: Yes (Other)
  Sender: FDA-Public Use
  Company Number: US-BEH-2017082172

PATIENT
  Sex: Male
  Weight: 65.31 kg

DRUGS (18)
  1. BIAXIN [Concomitant]
     Active Substance: CLARITHROMYCIN
  2. PROVENTIL [Concomitant]
     Active Substance: ALBUTEROL
  3. HIZENTRA [Suspect]
     Active Substance: HUMAN IMMUNOGLOBULIN G
     Indication: HYPOGAMMAGLOBULINAEMIA
     Dosage: 12 G, QW
     Route: 058
     Dates: start: 20110211
  4. ACETAMINOPHEN. [Concomitant]
     Active Substance: ACETAMINOPHEN
  5. SEROQUEL [Concomitant]
     Active Substance: QUETIAPINE FUMARATE
  6. ZONISAMIDE. [Concomitant]
     Active Substance: ZONISAMIDE
  7. SENOKOT [Concomitant]
     Active Substance: SENNOSIDES
  8. HIZENTRA [Suspect]
     Active Substance: HUMAN IMMUNOGLOBULIN G
     Dosage: UNK
     Route: 058
  9. LIDOCAINE/PRILOCAINE [Concomitant]
     Active Substance: LIDOCAINE\PRILOCAINE
  10. DULCOLAX (BISACODYL) [Concomitant]
     Active Substance: BISACODYL
  11. PREDNISONE. [Concomitant]
     Active Substance: PREDNISONE
  12. ALBUTEROL                          /00139501/ [Concomitant]
     Active Substance: ALBUTEROL
  13. EPINEPHRINE. [Concomitant]
     Active Substance: EPINEPHRINE
  14. ALAWAY [Concomitant]
     Active Substance: KETOTIFEN FUMARATE
  15. MIRALAX [Concomitant]
     Active Substance: POLYETHYLENE GLYCOL 3350
  16. BACTRIM DS [Concomitant]
     Active Substance: SULFAMETHOXAZOLE\TRIMETHOPRIM
  17. DIPHENHYDRAMINE. [Concomitant]
     Active Substance: DIPHENHYDRAMINE
  18. LMX                                /00033401/ [Concomitant]

REACTIONS (4)
  - Ear infection [Not Recovered/Not Resolved]
  - Facial bones fracture [Unknown]
  - Candida infection [Unknown]
  - Fall [Unknown]
